FAERS Safety Report 10219768 (Version 1)
Quarter: 2014Q2

REPORT INFORMATION
  Report Type: Spontaneous
  Country: US (occurrence: US)
  Receive Date: 20140605
  Receipt Date: 20140605
  Transmission Date: 20141212
  Serious: Yes (Hospitalization)
  Sender: FDA-Public Use
  Company Number: US-BAYER-2014-081572

PATIENT
  Age: 25 Year
  Sex: Female
  Weight: 62.59 kg

DRUGS (4)
  1. YASMIN [Suspect]
     Indication: AMENORRHOEA
  2. YASMIN [Suspect]
     Indication: CONTRACEPTION
  3. YASMIN [Suspect]
     Indication: MENSTRUAL CYCLE MANAGEMENT
  4. PERCOCET [Concomitant]
     Indication: PROCEDURAL PAIN

REACTIONS (1)
  - Deep vein thrombosis [None]
